FAERS Safety Report 14871228 (Version 1)
Quarter: 2018Q2

REPORT INFORMATION
  Report Type: Spontaneous
  Country: US (occurrence: US)
  Receive Date: 20180424
  Receipt Date: 20180424
  Transmission Date: 20180711
  Serious: No
  Sender: FDA-Public Use
  Company Number: None

PATIENT
  Age: 37 Year
  Sex: Male
  Weight: 131.4 kg

DRUGS (2)
  1. CIPROFLOXIAN HSR 500MG [Suspect]
     Active Substance: CIPROFLOXACIN
     Indication: URINARY TRACT INFECTION
     Dosage: ?          QUANTITY:20 TABLET(S);?
     Route: 048
     Dates: start: 20180423, end: 20180424
  2. CIPROFLOXIAN HSR 500MG [Suspect]
     Active Substance: CIPROFLOXACIN
     Indication: EPIDIDYMITIS
     Dosage: ?          QUANTITY:20 TABLET(S);?
     Route: 048
     Dates: start: 20180423, end: 20180424

REACTIONS (5)
  - Panic attack [None]
  - Paraesthesia [None]
  - Hypoaesthesia [None]
  - Flank pain [None]
  - Myalgia [None]

NARRATIVE: CASE EVENT DATE: 20180423
